FAERS Safety Report 5862957-1 (Version None)
Quarter: 2008Q3

REPORT INFORMATION
  Report Type: 
  Country: None (occurrence: None)
  Receive Date: 20080828
  Receipt Date: 20080818
  Transmission Date: 20090109
  Serious: Yes (Other)
  Sender: FDA-Public Use
  Company Number: B0360459A

PATIENT
  Age: 44 Year
  Sex: Female

DRUGS (5)
  1. SEROXAT [Suspect]
     Dosage: 20MG PER DAY
     Route: 065
     Dates: start: 19980930
  2. ZOPICLONE [Concomitant]
     Dates: start: 20030801
  3. LORAZEPAM [Concomitant]
     Dates: start: 20070501
  4. FLUOXETINE [Concomitant]
     Dates: start: 20070907
  5. TEMAZEPAM [Concomitant]
     Dates: start: 20071001, end: 20080301

REACTIONS (16)
  - AGITATION [None]
  - CONFUSIONAL STATE [None]
  - DISTURBANCE IN ATTENTION [None]
  - DIZZINESS [None]
  - DRUG WITHDRAWAL SYNDROME [None]
  - ELECTRIC SHOCK [None]
  - FATIGUE [None]
  - INFLUENZA [None]
  - MALAISE [None]
  - MEMORY IMPAIRMENT [None]
  - PERFORMANCE STATUS DECREASED [None]
  - SLEEP DISORDER [None]
  - SUICIDAL IDEATION [None]
  - TREMOR [None]
  - VERTIGO [None]
  - VOMITING [None]
